FAERS Safety Report 5329207-6 (Version None)
Quarter: 2007Q2

REPORT INFORMATION
  Report Type: 
  Country: None (occurrence: None)
  Receive Date: 20070518
  Receipt Date: 20070507
  Transmission Date: 20071010
  Serious: Yes (Other)
  Sender: FDA-Public Use
  Company Number: NL-PFIZER INC-2007034211

PATIENT
  Sex: Male
  Weight: 67 kg

DRUGS (10)
  1. LYRICA [Suspect]
     Indication: POLYNEUROPATHY
     Dosage: DAILY DOSE:600MG-FREQ:600MG DAILY
     Route: 048
  2. VIAGRA [Suspect]
     Indication: ERECTILE DYSFUNCTION
     Route: 048
  3. OXAZEPAM [Suspect]
  4. LANSOPRAZOLE [Concomitant]
     Route: 048
  5. NIFEDIPINE [Concomitant]
     Route: 048
  6. BISOPROLOL FUMARATE [Concomitant]
     Route: 048
  7. LANOXIN [Concomitant]
     Route: 048
  8. PRAVASTATIN [Concomitant]
     Route: 048
  9. ACENOCOUMAROL [Concomitant]
     Route: 048
  10. TEMAZEPAM [Concomitant]

REACTIONS (11)
  - ANORGASMIA [None]
  - CONSTIPATION [None]
  - DRUG ABUSER [None]
  - DRUG INEFFECTIVE [None]
  - DRY MOUTH [None]
  - DYSARTHRIA [None]
  - ERECTILE DYSFUNCTION [None]
  - FEELING DRUNK [None]
  - FLUID RETENTION [None]
  - MENTAL IMPAIRMENT [None]
  - WEIGHT INCREASED [None]
